FAERS Safety Report 12330551 (Version 3)
Quarter: 2016Q3

REPORT INFORMATION
  Report Type: Spontaneous
  Country: DE (occurrence: DE)
  Receive Date: 20160504
  Receipt Date: 20160826
  Transmission Date: 20161109
  Serious: Yes (Hospitalization, Other)
  Sender: FDA-Public Use
  Company Number: DE-ALEXION PHARMACEUTICALS INC-A201603167

PATIENT
  Age: 41 Year
  Sex: Male

DRUGS (9)
  1. TORASEMIDE [Concomitant]
     Active Substance: TORSEMIDE
     Indication: HYPERTENSION
     Dosage: 5 MG, UNK
     Route: 065
  2. AMLODIPIN                          /00972401/ [Concomitant]
     Active Substance: AMLODIPINE BESYLATE
     Indication: HYPERTENSION
     Dosage: 5 MG, BID
     Route: 065
  3. SOLIRIS [Suspect]
     Active Substance: ECULIZUMAB
     Indication: MALIGNANT HYPERTENSION
     Dosage: 900 MG, QW FOR FIVE WEEKS
     Route: 042
     Dates: start: 20150330
  4. CIPROFLOXACIN. [Concomitant]
     Active Substance: CIPROFLOXACIN
     Indication: PROPHYLAXIS
     Dosage: UNK
     Route: 065
     Dates: start: 20150330, end: 20150414
  5. SOLIRIS [Suspect]
     Active Substance: ECULIZUMAB
     Indication: OFF LABEL USE
     Dosage: 1200 MG, Q2W
     Route: 042
  6. BOSENTAN. [Concomitant]
     Active Substance: BOSENTAN
     Indication: MALIGNANT HYPERTENSION
     Dosage: 31.25 MG, BID
     Route: 065
  7. CANDESARTAN [Concomitant]
     Active Substance: CANDESARTAN
     Indication: HYPERTENSION
     Dosage: 8 MG, QD
     Route: 065
  8. BOSENTAN. [Concomitant]
     Active Substance: BOSENTAN
     Dosage: 125 MG, QD
  9. CARVEDILOL. [Concomitant]
     Active Substance: CARVEDILOL
     Indication: HYPERTENSION
     Dosage: 12.5 MG, UNK
     Route: 065

REACTIONS (3)
  - H1N1 influenza [Unknown]
  - Off label use [Recovered/Resolved]
  - Meningococcal bacteraemia [Recovered/Resolved]

NARRATIVE: CASE EVENT DATE: 20150330
